FAERS Safety Report 12660153 (Version 5)
Quarter: 2017Q2

REPORT INFORMATION
  Report Type: Report from Study
  Country: US (occurrence: US)
  Receive Date: 20160817
  Receipt Date: 20170511
  Transmission Date: 20170830
  Serious: Yes (Hospitalization, Other)
  Sender: FDA-Public Use
  Company Number: US-BAYER-2016-036646

PATIENT
  Age: 80 Year
  Sex: Female

DRUGS (17)
  1. APIXABAN [Concomitant]
     Active Substance: APIXABAN
  2. ADCIRCA [Concomitant]
     Active Substance: TADALAFIL
  3. LASIX [Concomitant]
     Active Substance: FUROSEMIDE
  4. PANTOPRAZOLE [Concomitant]
     Active Substance: PANTOPRAZOLE
  5. ADEMPAS [Suspect]
     Active Substance: RIOCIGUAT
     Indication: PULMONARY ARTERIAL HYPERTENSION
     Dosage: 1.0 MG, TID
     Route: 048
     Dates: start: 20160122
  6. VITAMIN D [Concomitant]
     Active Substance: CHOLECALCIFEROL
  7. CARVEDILOL. [Concomitant]
     Active Substance: CARVEDILOL
  8. ADEMPAS [Suspect]
     Active Substance: RIOCIGUAT
     Indication: PULMONARY ARTERIAL HYPERTENSION
     Dosage: 1 MG, TID
     Route: 048
     Dates: start: 20160123, end: 201602
  9. ADEMPAS [Suspect]
     Active Substance: RIOCIGUAT
     Indication: PULMONARY ARTERIAL HYPERTENSION
     Dosage: 0.5 MG, QID
     Route: 048
     Dates: start: 201602
  10. LANTUS [Concomitant]
     Active Substance: INSULIN GLARGINE
  11. VENTAVIS [Concomitant]
     Active Substance: ILOPROST
  12. OPSUMIT [Concomitant]
     Active Substance: MACITENTAN
  13. SIMVASTATIN. [Concomitant]
     Active Substance: SIMVASTATIN
  14. ADEMPAS [Suspect]
     Active Substance: RIOCIGUAT
     Indication: PULMONARY ARTERIAL HYPERTENSION
     Dosage: UNK
     Route: 048
     Dates: start: 20160107
  15. SPIRONOLACTONE. [Concomitant]
     Active Substance: SPIRONOLACTONE
  16. NOVOLOG [Concomitant]
     Active Substance: INSULIN ASPART
  17. LEVOTHYROXINE. [Concomitant]
     Active Substance: LEVOTHYROXINE

REACTIONS (13)
  - Pulmonary arterial hypertension [None]
  - Inappropriate schedule of drug administration [None]
  - Dyspnoea [None]
  - Gastric operation [None]
  - Hand fracture [None]
  - Fatigue [None]
  - Vomiting [None]
  - Neck pain [None]
  - Upper limb fracture [None]
  - Incorrect dosage administered [None]
  - Drug dose omission [None]
  - Wrist fracture [None]
  - Product closure removal difficult [None]

NARRATIVE: CASE EVENT DATE: 20160221
